FAERS Safety Report 17470565 (Version 1)
Quarter: 2020Q1

REPORT INFORMATION
  Report Type: Spontaneous
  Country: US (occurrence: US)
  Receive Date: 20200227
  Receipt Date: 20200227
  Transmission Date: 20200409
  Serious: Yes (Hospitalization)
  Sender: FDA-Public Use
  Company Number: US-JAZZ-2020-US-000399

PATIENT
  Age: 50 Year
  Sex: Female

DRUGS (4)
  1. BENZATROPINE [Concomitant]
     Active Substance: BENZTROPINE
     Dosage: 1 MG THREE TIMES DAILY
  2. BENZATROPINE [Concomitant]
     Active Substance: BENZTROPINE
     Indication: PRODUCT USED FOR UNKNOWN INDICATION
     Dosage: 0.5 MG TWICE DAILY
  3. CLOZAPINE. [Suspect]
     Active Substance: CLOZAPINE
     Indication: SCHIZOPHRENIA
     Dosage: 400 MG DAILY
     Route: 048
  4. CLOZAPINE. [Suspect]
     Active Substance: CLOZAPINE
     Dosage: 300 MG DAILY
     Route: 048

REACTIONS (1)
  - Salivary hypersecretion [Unknown]
